FAERS Safety Report 9789770 (Version 1)
Quarter: 2013Q4

REPORT INFORMATION
  Report Type: Spontaneous
  Country: KW (occurrence: KW)
  Receive Date: 20131231
  Receipt Date: 20131231
  Transmission Date: 20140711
  Serious: Yes (Death, Other)
  Sender: FDA-Public Use
  Company Number: KW-BAYER-2013-156022

PATIENT
  Age: 31 Year
  Sex: Male

DRUGS (4)
  1. CIPROFLOXACIN [Suspect]
     Indication: PNEUMONIA ASPIRATION
  2. CIPROFLOXACIN [Suspect]
     Indication: SEPSIS
  3. MEROPENEM [Suspect]
     Indication: PNEUMONIA ASPIRATION
  4. MEROPENEM [Suspect]
     Indication: SEPSIS

REACTIONS (7)
  - Septic shock [Fatal]
  - Multi-organ failure [Fatal]
  - Cardiac arrest [Fatal]
  - Cardiovascular disorder [None]
  - Renal impairment [None]
  - Critical illness polyneuropathy [None]
  - Drug ineffective [None]
